FAERS Safety Report 5621881-X (Version None)
Quarter: 2008Q1

REPORT INFORMATION
  Report Type: 
  Country: None (occurrence: None)
  Receive Date: 20080211
  Receipt Date: 20071204
  Transmission Date: 20080703
  Serious: Yes (Hospitalization)
  Sender: FDA-Public Use
  Company Number: US-BRISTOL-MYERS SQUIBB COMPANY-14004618

PATIENT
  Sex: Female

DRUGS (1)
  1. IXEMPRA [Suspect]
     Dates: start: 20071127

REACTIONS (3)
  - ABDOMINAL PAIN [None]
  - MUCOSAL INFLAMMATION [None]
  - NEUTROPENIA [None]
